FAERS Safety Report 7497460-9 (Version None)
Quarter: 2011Q2

REPORT INFORMATION
  Report Type: 
  Country: None (occurrence: None)
  Receive Date: 20110523
  Receipt Date: 20110506
  Transmission Date: 20111010
  Serious: Yes (Hospitalization)
  Sender: FDA-Public Use
  Company Number: IE-AMGEN-IRLSP2011023659

PATIENT
  Age: 46 Year
  Sex: Female

DRUGS (17)
  1. ZOFRAN [Concomitant]
  2. MOTILIUM                           /00498201/ [Concomitant]
  3. ARANESP [Concomitant]
     Indication: PRODUCT USED FOR UNKNOWN INDICATION
     Dosage: 150 A?G, 3 TIMES/WK
     Route: 058
  4. MOVICOL                            /01625101/ [Concomitant]
  5. ZOLPIDEM TARTRATE [Concomitant]
  6. MOLIPAXIN [Concomitant]
  7. TRAMADOL HCL [Concomitant]
  8. VALOID                             /00014902/ [Concomitant]
  9. VALTREX [Concomitant]
  10. DIFLUCAN [Concomitant]
  11. ELTROXIN [Concomitant]
  12. PREDNISOLONE [Concomitant]
  13. SERTRALINE HYDROCHLORIDE [Concomitant]
  14. EPILIM CHRONO                      /00228502/ [Concomitant]
  15. SEPTRA [Concomitant]
  16. NEULASTA [Suspect]
     Indication: CHEMOTHERAPY
     Dosage: 6 MG, Q3WK
     Route: 058
     Dates: start: 20110420
  17. LOSEPINE [Concomitant]

REACTIONS (3)
  - ANAEMIA [None]
  - NEUTROPENIA [None]
  - INAPPROPRIATE SCHEDULE OF DRUG ADMINISTRATION [None]
